FAERS Safety Report 15046441 (Version 2)
Quarter: 2019Q1

REPORT INFORMATION
  Report Type: Spontaneous
  Country: FR (occurrence: FR)
  Receive Date: 20180621
  Receipt Date: 20190128
  Transmission Date: 20190417
  Serious: Yes (Other)
  Sender: FDA-Public Use
  Company Number: FR-TEVA-2018-FR-911195

PATIENT
  Age: 39 Year
  Sex: Male

DRUGS (8)
  1. AMOXICILLIN. [Suspect]
     Active Substance: AMOXICILLIN
     Indication: TOOTH AVULSION
     Route: 048
     Dates: start: 201703, end: 20170404
  2. NATULAN [Suspect]
     Active Substance: PROCARBAZINE HYDROCHLORIDE
     Indication: BRAIN NEOPLASM
     Route: 048
     Dates: start: 20170323, end: 20170412
  3. KEPPRA [Concomitant]
     Active Substance: LEVETIRACETAM
  4. DIFFU K, G?LULE [Concomitant]
     Active Substance: POTASSIUM CHLORIDE
  5. VINCRISTINE HOSPIRA 2 MG/2 ML, SOLUTION INJECTABLE [Suspect]
     Active Substance: VINCRISTINE SULFATE
     Indication: BRAIN NEOPLASM
     Route: 042
     Dates: start: 20170330, end: 20170330
  6. LEXOMIL ROCHE [Concomitant]
     Active Substance: BROMAZEPAM
  7. SOLUPRED [Concomitant]
  8. BELUSTINE [Suspect]
     Active Substance: LOMUSTINE
     Indication: BRAIN NEOPLASM
     Route: 048
     Dates: start: 20170323, end: 20170323

REACTIONS (1)
  - Hepatocellular injury [Recovering/Resolving]

NARRATIVE: CASE EVENT DATE: 20170428
